FAERS Safety Report 19399270 (Version 1)
Quarter: 2021Q2

REPORT INFORMATION
  Report Type: Report from Study
  Country: US (occurrence: US)
  Receive Date: 20210610
  Receipt Date: 20210610
  Transmission Date: 20210717
  Serious: Yes (Other)
  Sender: FDA-Public Use
  Company Number: US-INSMED, INC.-2021-08546-US

PATIENT
  Age: 81 Year
  Sex: Female

DRUGS (2)
  1. ARIKAYCE [Suspect]
     Active Substance: AMIKACIN
     Indication: MYCOBACTERIAL INFECTION
     Dosage: 590 MILLIGRAM, QD
     Route: 055
     Dates: start: 202105, end: 20210531
  2. FASENRA [Concomitant]
     Active Substance: BENRALIZUMAB
     Indication: PRODUCT USED FOR UNKNOWN INDICATION
     Dosage: ONE INJECTION EVERY TWO MONTHS

REACTIONS (12)
  - Dizziness [Unknown]
  - Decreased appetite [Unknown]
  - Fatigue [Unknown]
  - Diarrhoea [Unknown]
  - Chronic obstructive pulmonary disease [Unknown]
  - Rhinorrhoea [Unknown]
  - Somnolence [Unknown]
  - Insomnia [Unknown]
  - General physical health deterioration [Unknown]
  - Unevaluable event [Unknown]
  - Candida infection [Unknown]
  - Adverse drug reaction [Unknown]

NARRATIVE: CASE EVENT DATE: 202105
